FAERS Safety Report 7150239-X (Version None)
Quarter: 2010Q4

REPORT INFORMATION
  Report Type: 
  Country: None (occurrence: None)
  Receive Date: 20101123
  Receipt Date: 20100907
  Transmission Date: 20110411
  Serious: No
  Sender: FDA-Public Use
  Company Number: 018374

PATIENT
  Sex: Female

DRUGS (1)
  1. CIMZIA [Suspect]
     Dosage: SUBCUTANEOUS
     Route: 058
     Dates: start: 20100715

REACTIONS (6)
  - ABDOMINAL PAIN [None]
  - FAECES HARD [None]
  - HAEMATOCHEZIA [None]
  - HEADACHE [None]
  - PAINFUL DEFAECATION [None]
  - VOMITING [None]
